FAERS Safety Report 9520342 (Version 1)
Quarter: 2013Q3

REPORT INFORMATION
  Report Type: Spontaneous
  Country: US (occurrence: US)
  Receive Date: 20130912
  Receipt Date: 20130912
  Transmission Date: 20140515
  Serious: Yes (Other)
  Sender: FDA-Public Use
  Company Number: GXBR2013US001664

PATIENT
  Age: 59 Year
  Sex: Female
  Weight: 55.78 kg

DRUGS (5)
  1. AMPHETAMINE COMBINATION TABLETS [Suspect]
     Indication: ATTENTION DEFICIT/HYPERACTIVITY DISORDER
     Dosage: 75 MG, QD
     Dates: start: 2006
  2. REQUIP [Concomitant]
     Indication: RESTLESS LEGS SYNDROME
     Dosage: 3 MG, QHS
  3. ATIVAN [Concomitant]
     Indication: INSOMNIA
     Dosage: 2 MG, QHS
  4. TUMS [Concomitant]
     Indication: ABDOMINAL DISCOMFORT
     Dosage: UNK DF, PRN
  5. ALKA-SELTZER                            /USA/ [Concomitant]
     Indication: ABDOMINAL DISCOMFORT
     Dosage: UNK DF, PRN

REACTIONS (4)
  - Suicidal ideation [Recovered/Resolved]
  - Anger [Not Recovered/Not Resolved]
  - Anxiety [Not Recovered/Not Resolved]
  - Nervousness [Not Recovered/Not Resolved]
